FAERS Safety Report 4851583-9 (Version None)
Quarter: 2005Q4

REPORT INFORMATION
  Report Type: 
  Country: None (occurrence: None)
  Receive Date: 20051212
  Receipt Date: 20051205
  Transmission Date: 20060501
  Serious: Yes (Other)
  Sender: FDA-Public Use
  Company Number: CA-ROCHE-427295

PATIENT
  Age: 49 Year
  Sex: Female

DRUGS (4)
  1. KETOROLAC TROMETHAMINE [Suspect]
     Indication: DRUG USE FOR UNKNOWN INDICATION
     Dosage: FREQUENCY REPORTED AS FIRST DOSE
     Route: 042
  2. PROCHLORPERAZINE [Suspect]
     Indication: DRUG USE FOR UNKNOWN INDICATION
     Dosage: FREQUENCY REPORTED AS FIRST DOSE
     Route: 042
  3. ALDACTONE [Concomitant]
     Route: 048
  4. AVAPRO [Concomitant]
     Route: 048

REACTIONS (3)
  - AGITATION [None]
  - MUSCLE RIGIDITY [None]
  - TORTICOLLIS [None]
